FAERS Safety Report 6330718-5 (Version None)
Quarter: 2009Q3

REPORT INFORMATION
  Report Type: 
  Country: None (occurrence: None)
  Receive Date: 20090827
  Receipt Date: 20090814
  Transmission Date: 20100115
  Serious: Yes (Other)
  Sender: FDA-Public Use
  Company Number: CZ-PFIZER SPOL. S R.O.-2009255399

PATIENT

DRUGS (1)
  1. ALPRAZOLAM [Suspect]
     Dosage: 3 TO 4 MG DAILY

REACTIONS (1)
  - DRUG ABUSE [None]
